FAERS Safety Report 10497005 (Version 1)
Quarter: 2014Q3

REPORT INFORMATION
  Report Type: Spontaneous
  Country: US (occurrence: None)
  Receive Date: 20140815
  Receipt Date: 20140815
  Transmission Date: 20150326
  Serious: Yes (Other)
  Sender: FDA-Public Use
  Company Number: ADR-2014-00782

PATIENT
  Age: 50 Year
  Sex: Male

DRUGS (2)
  1. HYDROMORPHONE INTRATHECAL [Suspect]
     Active Substance: HYDROMORPHONE
  2. BACLOFEN INTRATHECAL [Suspect]
     Active Substance: BACLOFEN
     Indication: PAIN
     Dates: end: 20120930

REACTIONS (6)
  - Staphylococcal infection [None]
  - Swelling [None]
  - Pain [None]
  - Erythema [None]
  - Implant site infection [None]
  - Pyrexia [None]
